FAERS Safety Report 22294404 (Version 1)
Quarter: 2023Q2

REPORT INFORMATION
  Report Type: Report from Study
  Country: GB (occurrence: GB)
  Receive Date: 20230508
  Receipt Date: 20230508
  Transmission Date: 20230722
  Serious: Yes (Life-Threatening, Hospitalization, Other)
  Sender: FDA-Public Use
  Company Number: GB-CELGENE-GBR-20210604546

PATIENT
  Age: 69 Year
  Sex: Male
  Weight: 85.1 kg

DRUGS (2)
  1. PACLITAXEL [Suspect]
     Active Substance: PACLITAXEL
     Indication: Pancreatic carcinoma
     Dosage: FREQUENCY TEXT: DAY 1,8,15 AND 28 DAY CYCLE?212.5 MILLIGRAM
     Route: 042
     Dates: start: 20210304, end: 20210610
  2. GEMCITABINE [Suspect]
     Active Substance: GEMCITABINE
     Indication: Pancreatic carcinoma
     Dosage: FREQUENCY TEXT: DAY 1,8,15 AND 28 DAY CYCLE?1800 MILLIGRAM
     Route: 042
     Dates: start: 20210304, end: 20210610

REACTIONS (3)
  - Neutropenic colitis [Recovered/Resolved]
  - Neutrophil count decreased [Recovered/Resolved with Sequelae]
  - Neutropenic sepsis [Not Recovered/Not Resolved]

NARRATIVE: CASE EVENT DATE: 20210614
